FAERS Safety Report 19724753 (Version 1)
Quarter: 2021Q3

REPORT INFORMATION
  Report Type: Spontaneous
  Country: NL (occurrence: IT)
  Receive Date: 20210820
  Receipt Date: 20210820
  Transmission Date: 20211014
  Serious: Yes (Hospitalization, Other)
  Sender: FDA-Public Use
  Company Number: NL-KYOWAKIRIN-2021BKK013988

PATIENT

DRUGS (5)
  1. FLUCONAZOLO ABC [Concomitant]
     Indication: ANTIFUNGAL PROPHYLAXIS
     Dosage: 100 MG
     Route: 065
  2. SULFAMETHOXAZOLE+TRIMETHOPRIM [Concomitant]
     Active Substance: SULFAMETHOXAZOLE\TRIMETHOPRIM
     Indication: PRODUCT USED FOR UNKNOWN INDICATION
     Dosage: UNK
     Route: 065
     Dates: start: 20210401, end: 20210715
  3. VALACICLOVIR ACTAVIS [Concomitant]
     Active Substance: VALACYCLOVIR HYDROCHLORIDE
     Indication: PRODUCT USED FOR UNKNOWN INDICATION
     Dosage: 1 G
     Route: 048
     Dates: start: 20210401, end: 20210715
  4. POTELIGEO [Suspect]
     Active Substance: MOGAMULIZUMAB-KPKC
     Indication: CUTANEOUS LYMPHOMA
     Dosage: 1 UG/KG, CYCLICAL
     Route: 042
     Dates: start: 20210427, end: 20210617
  5. ZORIAS [Concomitant]
     Indication: CUTANEOUS T-CELL LYMPHOMA
     Dosage: 25 MG
     Route: 048
     Dates: start: 20210511, end: 20210715

REACTIONS (2)
  - Chest pain [Recovered/Resolved]
  - Angina pectoris [Recovered/Resolved]

NARRATIVE: CASE EVENT DATE: 20210715
